FAERS Safety Report 7352603-2 (Version None)
Quarter: 2011Q1

REPORT INFORMATION
  Report Type: 
  Country: None (occurrence: None)
  Receive Date: 20110315
  Receipt Date: 20110314
  Transmission Date: 20110831
  Serious: Yes (Other)
  Sender: FDA-Public Use
  Company Number: US-AMGEN-USASP2011013872

PATIENT
  Sex: Female
  Weight: 75 kg

DRUGS (5)
  1. BETOPTIC [Concomitant]
  2. PRILOSEC [Concomitant]
  3. VITAMINS                           /00067501/ [Concomitant]
  4. NPLATE [Suspect]
     Indication: IDIOPATHIC THROMBOCYTOPENIC PURPURA
     Dosage: 1 A?G, QWK
     Dates: start: 20101105, end: 20110307
  5. SIMVASTATIN [Concomitant]

REACTIONS (2)
  - PLATELET COUNT DECREASED [None]
  - PLATELET COUNT INCREASED [None]
